FAERS Safety Report 5361155-8 (Version None)
Quarter: 2007Q2

REPORT INFORMATION
  Report Type: 
  Country: None (occurrence: None)
  Receive Date: 20070618
  Receipt Date: 20070613
  Transmission Date: 20071010
  Serious: Yes (Other)
  Sender: FDA-Public Use
  Company Number: GB-MERCK-0702GBR00007

PATIENT
  Age: 78 Year
  Sex: Male
  Weight: 73 kg

DRUGS (7)
  1. ZOCOR [Suspect]
     Indication: HYPERCHOLESTEROLAEMIA
     Route: 048
     Dates: start: 20070108, end: 20070119
  2. ZOCOR [Suspect]
     Route: 048
     Dates: start: 20060306, end: 20061001
  3. AMLODIPINE BESYLATE [Concomitant]
     Indication: BLOOD PRESSURE
     Route: 048
     Dates: start: 20050101, end: 20060101
  4. ASPIRIN [Concomitant]
     Indication: PLATELET DISORDER
     Route: 048
     Dates: start: 20040101
  5. ATENOLOL [Concomitant]
     Indication: BLOOD PRESSURE
     Route: 065
     Dates: start: 20030101
  6. FINASTERIDE [Concomitant]
     Indication: PROSTATITIS
     Route: 048
     Dates: start: 20030101
  7. ALFUZOSIN HYDROCHLORIDE [Concomitant]
     Indication: URINARY RETENTION
     Route: 048
     Dates: start: 20030101

REACTIONS (4)
  - GASTROINTESTINAL DISORDER [None]
  - GASTROINTESTINAL PAIN [None]
  - NAUSEA [None]
  - VOMITING [None]
